FAERS Safety Report 15315771 (Version 1)
Quarter: 2018Q3

REPORT INFORMATION
  Report Type: Report from Study
  Country: EG (occurrence: EG)
  Receive Date: 20180824
  Receipt Date: 20180824
  Transmission Date: 20181010
  Serious: Yes (Death, Other)
  Sender: FDA-Public Use
  Company Number: EG-SA-2018SA195960

PATIENT
  Age: 88 Year
  Sex: Male

DRUGS (8)
  1. ACTRAPID [INSULIN HUMAN] [Concomitant]
  2. MAREVAN [Concomitant]
     Active Substance: WARFARIN SODIUM
  3. KAPRON [TRANEXAMIC ACID] [Concomitant]
  4. INSULIN GLARGINE [Suspect]
     Active Substance: INSULIN GLARGINE
     Indication: TYPE 2 DIABETES MELLITUS
     Dosage: 15 IU, QD
     Route: 058
     Dates: start: 20171002, end: 20180514
  5. LASIX [FUROSEMIDE SODIUM] [Concomitant]
  6. ANTOPRAL [Concomitant]
  7. TAMSULIN [Concomitant]
  8. ELTROXIN [Concomitant]
     Active Substance: LEVOTHYROXINE

REACTIONS (3)
  - Cardiac arrest [Unknown]
  - Sudden death [Fatal]
  - Pallor [Unknown]

NARRATIVE: CASE EVENT DATE: 20180512
